FAERS Safety Report 16060780 (Version 1)
Quarter: 2019Q1

REPORT INFORMATION
  Report Type: Spontaneous
  Country: US (occurrence: US)
  Receive Date: 20190312
  Receipt Date: 20190312
  Transmission Date: 20190418
  Serious: No
  Sender: FDA-Public Use
  Company Number: US-ASTRAZENECA-2019SE35200

PATIENT
  Sex: Female

DRUGS (1)
  1. ZOMIG [Suspect]
     Active Substance: ZOLMITRIPTAN
     Indication: MIGRAINE
     Dosage: 2.5 MG- USE ONE SPRAY IN ONE NOSTRIL AT HEADACHE START, MAY REPEAT IN 2 HOURS IF NECESSARY.
     Route: 045

REACTIONS (2)
  - Migraine [Unknown]
  - Nasopharyngitis [Unknown]
